FAERS Safety Report 4322621-7 (Version None)
Quarter: 2004Q1

REPORT INFORMATION
  Report Type: 
  Country: None (occurrence: None)
  Receive Date: 20040324
  Receipt Date: 20030328
  Transmission Date: 20041129
  Serious: Yes (Hospitalization, Other)
  Sender: FDA-Public Use
  Company Number: WAES 0303USA02790

PATIENT
  Age: 53 Year
  Sex: Female

DRUGS (5)
  1. BETAMETHASONE AND BUPIVACAINE HYDROCHLORIDE [Concomitant]
     Indication: JOINT DISLOCATION
     Route: 051
  2. ARTHROTEC [Concomitant]
  3. NAPRELAN [Concomitant]
  4. VIOXX [Suspect]
     Indication: ARTHRALGIA
     Route: 048
     Dates: start: 19991202, end: 19991201
  5. VIOXX [Suspect]
     Route: 048
     Dates: start: 20000405, end: 20000701

REACTIONS (36)
  - ABDOMINAL PAIN [None]
  - ANAEMIA [None]
  - ASTHENIA [None]
  - ATELECTASIS [None]
  - BACK PAIN [None]
  - BURSITIS [None]
  - CERVICAL DYSPLASIA [None]
  - CHANGE OF BOWEL HABIT [None]
  - CHEST DISCOMFORT [None]
  - CONTUSION [None]
  - COUGH [None]
  - DIVERTICULUM INTESTINAL [None]
  - DYSPHAGIA [None]
  - DYSPNOEA [None]
  - ENDOMETRIAL HYPERPLASIA [None]
  - GASTRIC ULCER [None]
  - GASTRITIS [None]
  - GASTROINTESTINAL HAEMORRHAGE [None]
  - HAEMORRHOIDS [None]
  - HEADACHE [None]
  - HIATUS HERNIA [None]
  - HOT FLUSH [None]
  - LUNG NEOPLASM [None]
  - MUSCLE STRAIN [None]
  - NECK PAIN [None]
  - ODYNOPHAGIA [None]
  - OESOPHAGITIS [None]
  - PERIODONTAL DISEASE [None]
  - PROCTALGIA [None]
  - RASH [None]
  - RECTAL HAEMORRHAGE [None]
  - REFLUX OESOPHAGITIS [None]
  - ROAD TRAFFIC ACCIDENT [None]
  - SINUS DISORDER [None]
  - UTERINE LEIOMYOMA [None]
  - VAGINAL HAEMORRHAGE [None]
